FAERS Safety Report 6529288-8 (Version None)
Quarter: 2010Q1

REPORT INFORMATION
  Report Type: 
  Country: None (occurrence: None)
  Receive Date: 20100104
  Receipt Date: 20091217
  Transmission Date: 20100710
  Serious: Yes (Hospitalization)
  Sender: FDA-Public Use
  Company Number: FR-2009-2647

PATIENT
  Age: 67 Year
  Sex: Male

DRUGS (17)
  1. NAVELBINE [Suspect]
     Indication: ADENOCARCINOMA
     Dosage: 30 MG/M2 ONCE IV
     Route: 042
     Dates: start: 20090910, end: 20090910
  2. NAVELBINE [Suspect]
     Indication: ADENOCARCINOMA
     Dosage: 113 MG ONCE PO
     Route: 048
     Dates: start: 20090917, end: 20090917
  3. CARBOPLATIN [Suspect]
     Indication: LUNG ADENOCARCINOMA
     Dosage: 570 MG ONCE IV
     Route: 042
     Dates: start: 20090911, end: 20090911
  4. PIPERCILLIN AND TAZOBACTAM [Suspect]
     Indication: AGRANULOCYTOSIS
     Dosage: 12 G QD IV
     Route: 042
     Dates: start: 20090922, end: 20090929
  5. STABLON [Concomitant]
  6. XANAX [Concomitant]
  7. LYRICA [Concomitant]
  8. TARDYFERON [Concomitant]
  9. VITAMINS [Concomitant]
  10. ASPEGIC 1000 [Concomitant]
  11. NEXIUM [Concomitant]
  12. LASILIX [Concomitant]
  13. NITROGLYCERIN [Concomitant]
  14. INNOHEP [Concomitant]
  15. FORLAX [Concomitant]
  16. DOLIPRANE [Concomitant]
  17. TOPALGIC [Concomitant]

REACTIONS (8)
  - ABDOMINAL PAIN [None]
  - AGRANULOCYTOSIS [None]
  - ASTHENIA [None]
  - DIVERTICULITIS [None]
  - INFLAMMATION [None]
  - NAUSEA [None]
  - PYREXIA [None]
  - THROMBOCYTOPENIA [None]
